FAERS Safety Report 5873823-X (Version None)
Quarter: 2008Q3

REPORT INFORMATION
  Report Type: 
  Country: None (occurrence: None)
  Receive Date: 20080903
  Receipt Date: 20080822
  Transmission Date: 20090109
  Serious: Yes (Other)
  Sender: FDA-Public Use
  Company Number: ADE2008-0278

PATIENT
  Age: 36 Week
  Sex: Female
  Weight: 2.27 kg

DRUGS (4)
  1. CITALOPRAM HYDROBROMIDE [Suspect]
     Indication: DEPRESSION
     Dosage: 40 MG-QD; TRANSPLACENTAL
     Route: 064
  2. ONDANSETRON [Suspect]
     Indication: VOMITING
     Dosage: 4MG,BID; TRANSPLACENTAL
     Route: 064
  3. URSODIOL [Concomitant]
  4. ZANTAC [Concomitant]

REACTIONS (11)
  - CONTRAINDICATION TO MEDICAL TREATMENT [None]
  - DRUG INTERACTION [None]
  - DRUG WITHDRAWAL SYNDROME NEONATAL [None]
  - EXTRAPYRAMIDAL DISORDER [None]
  - GRUNTING [None]
  - HYPERTONIA NEONATAL [None]
  - LATE METABOLIC ACIDOSIS OF NEWBORN [None]
  - MATERNAL DRUGS AFFECTING FOETUS [None]
  - NEONATAL DISORDER [None]
  - NEONATAL RESPIRATORY DISTRESS SYNDROME [None]
  - PREMATURE BABY [None]
